FAERS Safety Report 18068109 (Version 4)
Quarter: 2020Q3

REPORT INFORMATION
  Report Type: Spontaneous
  Country: US (occurrence: US)
  Receive Date: 20200724
  Receipt Date: 20200727
  Transmission Date: 20201103
  Serious: Yes (Death)
  Sender: FDA-Public Use
  Company Number: US-PFIZER INC-2020277027

PATIENT
  Sex: Male

DRUGS (2)
  1. DEMEROL [Suspect]
     Active Substance: MEPERIDINE HYDROCHLORIDE
     Indication: SURGERY
     Dosage: UNK
  2. NARDIL [Interacting]
     Active Substance: PHENELZINE SULFATE
     Dosage: UNK

REACTIONS (3)
  - Drug interaction [Fatal]
  - Drug hypersensitivity [Fatal]
  - Contraindicated product administered [Fatal]
